FAERS Safety Report 9495469 (Version 3)
Quarter: 2013Q4

REPORT INFORMATION
  Report Type: Spontaneous
  Country: US (occurrence: US)
  Receive Date: 20130903
  Receipt Date: 20131206
  Transmission Date: 20140711
  Serious: Yes (Other)
  Sender: FDA-Public Use
  Company Number: US-BAYER-2013-104426

PATIENT
  Age: 29 Year
  Sex: Female
  Weight: 79.82 kg

DRUGS (3)
  1. SKYLA [Suspect]
     Indication: CONTRACEPTION
     Dosage: 14 MCG/24HR, CONT
     Route: 015
     Dates: start: 20130611, end: 20130711
  2. TOPAMAX [Concomitant]
     Indication: MIGRAINE
     Dosage: 50 MG, BID
     Route: 048
     Dates: start: 20130717, end: 20130824
  3. FIORICET [Concomitant]
     Indication: MIGRAINE
     Dosage: 50/325/40MG Q6 PRN
     Route: 048
     Dates: start: 20130603, end: 20130711

REACTIONS (3)
  - Embedded device [None]
  - Pregnancy with contraceptive device [Not Recovered/Not Resolved]
  - Drug ineffective [None]
